FAERS Safety Report 9105612 (Version 7)
Quarter: 2015Q2

REPORT INFORMATION
  Report Type: Spontaneous
  Country: US (occurrence: US)
  Receive Date: 20130221
  Receipt Date: 20150511
  Transmission Date: 20150821
  Serious: Yes (Life-Threatening, Hospitalization, Other)
  Sender: FDA-Public Use
  Company Number: US-GLAXOSMITHKLINE-A0919029A

PATIENT
  Age: 43 Year
  Sex: Male
  Weight: 66 kg

DRUGS (7)
  1. FLOLAN [Suspect]
     Active Substance: EPOPROSTENOL SODIUM
     Dosage: UNK
     Dates: start: 20020517
  2. FLOLAN [Suspect]
     Active Substance: EPOPROSTENOL SODIUM
     Dosage: UNK
     Dates: start: 20020517
  3. FLOLAN [Suspect]
     Active Substance: EPOPROSTENOL SODIUM
     Dosage: UNK
     Dates: start: 20020517
  4. FLOLAN [Suspect]
     Active Substance: EPOPROSTENOL SODIUM
     Indication: PULMONARY ARTERIAL HYPERTENSION
     Dosage: 50 NG/KG/MIN54 NG/KG/MIN60 NG/KG/MIN, CONCENTRATION 75,000 NG/ML, PUMP RATE 82 ML/DAY, VIAL STR[...]
     Route: 042
     Dates: start: 20020517
  5. REMERON [Suspect]
     Active Substance: MIRTAZAPINE
     Indication: PRODUCT USED FOR UNKNOWN INDICATION
     Dosage: 45 MG, U
  6. FLOLAN [Suspect]
     Active Substance: EPOPROSTENOL SODIUM
     Dosage: 60 NG/KG/MIN CONTINUOUS; CONCENTRATION: 75,000 NG/ML; PUMP RATE: 82 ML/DAY; VIAL STRENGTH: 1.5 MG
     Route: 042
     Dates: start: 20020514
  7. FLOLAN [Suspect]
     Active Substance: EPOPROSTENOL SODIUM
     Dosage: UNK
     Dates: start: 20020517

REACTIONS (8)
  - Cough [Recovered/Resolved]
  - Dyspnoea [Not Recovered/Not Resolved]
  - Catheter site infection [Not Recovered/Not Resolved]
  - Pneumonia [Recovered/Resolved]
  - Cellulitis [Recovering/Resolving]
  - Infusion site infection [Not Recovered/Not Resolved]
  - Catheter site erythema [Not Recovered/Not Resolved]
  - Constipation [Not Recovered/Not Resolved]

NARRATIVE: CASE EVENT DATE: 20110223
